FAERS Safety Report 21560059 (Version 1)
Quarter: 2022Q4

REPORT INFORMATION
  Report Type: Spontaneous
  Country: PK (occurrence: PK)
  Receive Date: 20221107
  Receipt Date: 20221107
  Transmission Date: 20230113
  Serious: Yes (Other)
  Sender: FDA-Public Use
  Company Number: PK-002147023-NVSC2022PK249955

PATIENT
  Sex: Female

DRUGS (3)
  1. MYCOPHENOLATE MOFETIL [Suspect]
     Active Substance: MYCOPHENOLATE MOFETIL
     Indication: Product used for unknown indication
     Dosage: UNK, UNKNOWN
     Route: 065
  2. TACROLIMUS [Suspect]
     Active Substance: TACROLIMUS
     Indication: Product used for unknown indication
     Dosage: UNKNOWN
     Route: 065
  3. PREDNISONE [Suspect]
     Active Substance: PREDNISONE
     Indication: Product used for unknown indication
     Dosage: UNK, UNKNOWN
     Route: 065

REACTIONS (2)
  - Chronic graft versus host disease [Not Recovered/Not Resolved]
  - Acute myeloid leukaemia [Not Recovered/Not Resolved]
